FAERS Safety Report 16785473 (Version 1)
Quarter: 2019Q4

REPORT INFORMATION
  Report Type: Spontaneous
  Country: US (occurrence: US)
  Receive Date: 20190907
  Receipt Date: 20190907
  Transmission Date: 20200122
  Serious: Yes (Hospitalization)
  Sender: FDA-Public Use
  Company Number: None

PATIENT
  Age: 79 Year
  Sex: Female

DRUGS (1)
  1. PROLIA [Suspect]
     Active Substance: DENOSUMAB

REACTIONS (7)
  - Hyperparathyroidism [None]
  - High turnover osteopathy [None]
  - Chronic kidney disease-mineral and bone disorder [None]
  - Asthenia [None]
  - Hypocalcaemia [None]
  - Facial paralysis [None]
  - Therapeutic product effect increased [None]

NARRATIVE: CASE EVENT DATE: 20190715
